FAERS Safety Report 9391791 (Version 2)
Quarter: 2013Q3

REPORT INFORMATION
  Report Type: Report from Study
  Country: US (occurrence: US)
  Receive Date: 20130709
  Receipt Date: 20130718
  Transmission Date: 20140515
  Serious: Yes (Hospitalization)
  Sender: FDA-Public Use
  Company Number: US-ACTELION-A-US2013-85415

PATIENT
  Age: 48 Year
  Sex: Male

DRUGS (2)
  1. VELETRI [Suspect]
     Indication: PULMONARY ARTERIAL HYPERTENSION
     Dosage: 2 NG/KG, PER MIN
     Route: 042
     Dates: start: 20130525
  2. COUMADIN [Concomitant]

REACTIONS (3)
  - Atrial fibrillation [Recovered/Resolved]
  - Cardioversion [Recovered/Resolved]
  - Echocardiogram [Recovered/Resolved]
